APPROVED DRUG PRODUCT: BACLOFEN
Active Ingredient: BACLOFEN
Strength: 5MG
Dosage Form/Route: TABLET;ORAL
Application: A214114 | Product #003 | TE Code: AB
Applicant: REGCON HOLDINGS LLC
Approved: Sep 19, 2023 | RLD: No | RS: No | Type: RX